FAERS Safety Report 9018180 (Version 1)
Quarter: 2013Q1

REPORT INFORMATION
  Report Type: Spontaneous
  Country: US (occurrence: None)
  Receive Date: 20130111
  Receipt Date: 20130111
  Transmission Date: 20140127
  Serious: Yes (Disabling)
  Sender: FDA-Public Use
  Company Number: None

PATIENT
  Age: 62 Year
  Sex: Female
  Weight: 62.14 kg

DRUGS (1)
  1. PRAVASTATIN SODIUM [Suspect]
     Indication: HYPERLIPIDAEMIA
     Route: 048
     Dates: start: 20110701, end: 20120705

REACTIONS (9)
  - Myalgia [None]
  - Arthralgia [None]
  - Pollakiuria [None]
  - Dehydration [None]
  - Blood sodium increased [None]
  - Obsessive-compulsive disorder [None]
  - Pain [None]
  - Movement disorder [None]
  - Arthralgia [None]
